FAERS Safety Report 16316004 (Version 1)
Quarter: 2019Q2

REPORT INFORMATION
  Report Type: Spontaneous
  Country: US (occurrence: US)
  Receive Date: 20190515
  Receipt Date: 20190515
  Transmission Date: 20190711
  Serious: No
  Sender: FDA-Public Use
  Company Number: US-SA-2019SA126449

PATIENT
  Age: 16 Year
  Sex: Female

DRUGS (2)
  1. TUBERCULIN PPD [Suspect]
     Active Substance: TUBERCULIN PURIFIED PROTEIN DERIVATIVE
     Indication: TUBERCULIN TEST
     Route: 065
  2. IPOL [Suspect]
     Active Substance: POLIOVIRUS TYPE 1 ANTIGEN (FORMALDEHYDE INACTIVATED)\POLIOVIRUS TYPE 2 ANTIGEN (FORMALDEHYDE INACTIVATED)\POLIOVIRUS TYPE 3 ANTIGEN (FORMALDEHYDE INACTIVATED)\POLIOVIRUS VACCINE INACTIVATED MONKEY KIDNEY CELL
     Indication: IMMUNISATION
     Dosage: .1 ML
     Route: 023
     Dates: start: 20190506

REACTIONS (4)
  - Product selection error [Unknown]
  - Wrong product administered [Unknown]
  - Incorrect route of product administration [Unknown]
  - Underdose [Unknown]
